FAERS Safety Report 15640381 (Version 2)
Quarter: 2018Q4

REPORT INFORMATION
  Report Type: Spontaneous
  Country: PT (occurrence: PT)
  Receive Date: 20181120
  Receipt Date: 20181126
  Transmission Date: 20190205
  Serious: Yes (Other)
  Sender: FDA-Public Use
  Company Number: PHHY2018PT158896

PATIENT
  Age: 39 Year
  Sex: Male
  Weight: 86 kg

DRUGS (9)
  1. VOLTAREN [Suspect]
     Active Substance: DICLOFENAC SODIUM
     Indication: INTERVERTEBRAL DISC PROTRUSION
     Dosage: 1 ?G/L, QD
     Route: 030
     Dates: start: 20181022
  2. VOLTAREN [Suspect]
     Active Substance: DICLOFENAC SODIUM
     Dosage: 1 ?G/L, QD
     Route: 030
     Dates: start: 20181029, end: 20181030
  3. VOLTAREN [Suspect]
     Active Substance: DICLOFENAC SODIUM
     Dosage: 1 ?G/L, QD
     Route: 030
     Dates: start: 20181025
  4. NEUROBION [Concomitant]
     Active Substance: CYANOCOBALAMIN\PYRIDOXINE\THIAMINE
     Indication: PRODUCT USED FOR UNKNOWN INDICATION
     Dosage: 1 ?G/L, QD
     Route: 065
  5. MORFEX [Concomitant]
     Active Substance: FLURAZEPAM HYDROCHLORIDE
     Indication: INSOMNIA
     Dosage: 15 MG, UNK
     Route: 048
  6. VOLTAREN [Suspect]
     Active Substance: DICLOFENAC SODIUM
     Dosage: 1 ?G/L, QD
     Route: 030
     Dates: start: 20181026
  7. DIAZEPAM. [Concomitant]
     Active Substance: DIAZEPAM
     Indication: ANXIETY
     Dosage: 5 MG, UNK
     Route: 048
  8. FOLICIL [Concomitant]
     Active Substance: FOLIC ACID
     Indication: MEMORY IMPAIRMENT
     Dosage: 1 ?G/L, QD
     Route: 048
  9. RELMUS [Concomitant]
     Active Substance: THIOCOLCHICOSIDE
     Indication: INTERVERTEBRAL DISC PROTRUSION
     Dosage: 4 MG, UNK
     Route: 065
     Dates: start: 20181022

REACTIONS (4)
  - Haematoma [Recovering/Resolving]
  - Thrombocytopenia [Recovering/Resolving]
  - Rash macular [Recovering/Resolving]
  - Product use issue [Unknown]

NARRATIVE: CASE EVENT DATE: 20181022
